FAERS Safety Report 16986287 (Version 1)
Quarter: 2019Q4

REPORT INFORMATION
  Report Type: Spontaneous
  Country: US (occurrence: US)
  Receive Date: 20190918
  Receipt Date: 20190918
  Transmission Date: 20200122
  Serious: No
  Sender: FDA-Public Use
  Company Number: None

PATIENT
  Age: 61 Year
  Sex: Female

DRUGS (1)
  1. STELARA [Suspect]
     Active Substance: USTEKINUMAB
     Route: 058
     Dates: start: 201907

REACTIONS (4)
  - Psoriasis [None]
  - Post herpetic neuralgia [None]
  - Scab [None]
  - Neuralgia [None]

NARRATIVE: CASE EVENT DATE: 20190803
